FAERS Safety Report 21624011 (Version 1)
Quarter: 2022Q4

REPORT INFORMATION
  Report Type: Spontaneous
  Country: DE (occurrence: DE)
  Receive Date: 20221121
  Receipt Date: 20221121
  Transmission Date: 20230113
  Serious: Yes (Other)
  Sender: FDA-Public Use
  Company Number: DE-Accord-284585

PATIENT
  Sex: Female

DRUGS (29)
  1. UNSPECIFIED INGREDIENT [Suspect]
     Active Substance: UNSPECIFIED INGREDIENT
     Indication: Product used for unknown indication
     Dosage: UNK
     Dates: start: 20220722
  2. UNSPECIFIED INGREDIENT [Suspect]
     Active Substance: UNSPECIFIED INGREDIENT
     Dosage: UNK
     Dates: start: 202006
  3. UNSPECIFIED INGREDIENT [Suspect]
     Active Substance: UNSPECIFIED INGREDIENT
     Dosage: UNK
     Dates: start: 202004
  4. UNSPECIFIED INGREDIENT [Suspect]
     Active Substance: UNSPECIFIED INGREDIENT
     Dosage: UNK
     Dates: start: 201906
  5. UNSPECIFIED INGREDIENT [Suspect]
     Active Substance: UNSPECIFIED INGREDIENT
     Dosage: UNK
     Dates: start: 201809, end: 201812
  6. UNSPECIFIED INGREDIENT [Suspect]
     Active Substance: UNSPECIFIED INGREDIENT
     Dosage: UNK
     Dates: start: 201803
  7. UNSPECIFIED INGREDIENT [Suspect]
     Active Substance: UNSPECIFIED INGREDIENT
     Dosage: UNK
     Dates: start: 201403
  8. LENALIDOMIDE [Suspect]
     Active Substance: LENALIDOMIDE
     Indication: Product used for unknown indication
     Dosage: UNK
     Dates: start: 201809, end: 201812
  9. LENALIDOMIDE [Suspect]
     Active Substance: LENALIDOMIDE
     Dosage: UNK
     Dates: start: 201803
  10. LENALIDOMIDE [Suspect]
     Active Substance: LENALIDOMIDE
     Dosage: 10 MG, QD
     Dates: start: 201410, end: 201607
  11. LENALIDOMIDE [Suspect]
     Active Substance: LENALIDOMIDE
     Dosage: UNK
     Dates: start: 201403
  12. BORTEZOMIB [Suspect]
     Active Substance: BORTEZOMIB
     Indication: Product used for unknown indication
     Dosage: UNK
     Dates: start: 202006
  13. BORTEZOMIB [Suspect]
     Active Substance: BORTEZOMIB
     Dosage: UNK
     Dates: start: 201906
  14. BORTEZOMIB [Suspect]
     Active Substance: BORTEZOMIB
     Dosage: UNK
     Dates: start: 201403
  15. ADRIAMYCIN [Concomitant]
     Active Substance: DOXORUBICIN HYDROCHLORIDE
     Dates: start: 202006
  16. ETOPOSIDE [Concomitant]
     Active Substance: ETOPOSIDE
     Dates: start: 201407
  17. POMALIDOMIDE [Concomitant]
     Active Substance: POMALIDOMIDE
     Dosage: UNK
     Dates: start: 20220722
  18. POMALIDOMIDE [Concomitant]
     Active Substance: POMALIDOMIDE
     Dosage: UNK
     Dates: start: 202006
  19. POMALIDOMIDE [Concomitant]
     Active Substance: POMALIDOMIDE
     Dosage: UNK
     Dates: start: 202004
  20. ISATUXIMAB [Concomitant]
     Active Substance: ISATUXIMAB
     Dates: start: 20220722
  21. CYCLOPHOSPHAMIDE [Concomitant]
     Active Substance: CYCLOPHOSPHAMIDE
     Dates: start: 201407
  22. ELOTUZUMAB [Concomitant]
     Active Substance: ELOTUZUMAB
     Dates: start: 202004
  23. MELPHALAN [Concomitant]
     Active Substance: MELPHALAN
     Dosage: UNK
     Dates: start: 201906
  24. MELPHALAN [Concomitant]
     Active Substance: MELPHALAN
     Dosage: DRUG STARTED: APR-MAY/ 2019
     Dates: start: 2019
  25. MELPHALAN [Concomitant]
     Active Substance: MELPHALAN
     Dosage: UNK
     Dates: start: 201408
  26. DARATUMUMAB [Concomitant]
     Active Substance: DARATUMUMAB
     Dosage: UNK
     Dates: start: 202006
  27. DARATUMUMAB [Concomitant]
     Active Substance: DARATUMUMAB
     Dosage: DRUG STARTED: JAN-FEB /2019
     Dates: end: 201904
  28. CARFILZOMIB [Concomitant]
     Active Substance: CARFILZOMIB
     Dosage: UNK
     Dates: start: 201809, end: 201812
  29. CARFILZOMIB [Concomitant]
     Active Substance: CARFILZOMIB
     Dosage: UNK
     Dates: start: 201803

REACTIONS (6)
  - Influenza [Unknown]
  - Pneumonia pneumococcal [Unknown]
  - Pneumococcal sepsis [Unknown]
  - Meningitis [Unknown]
  - Herpes zoster [Unknown]
  - Febrile infection [Unknown]

NARRATIVE: CASE EVENT DATE: 20151001
